FAERS Safety Report 5885695-8 (Version None)
Quarter: 2008Q3

REPORT INFORMATION
  Report Type: 
  Country: None (occurrence: None)
  Receive Date: 20080912
  Receipt Date: 20080905
  Transmission Date: 20090109
  Serious: Yes (Disabling)
  Sender: FDA-Public Use
  Company Number: 2008SP018594

PATIENT
  Age: 36 Year
  Sex: Male

DRUGS (1)
  1. LOTRIDERM (CLOTRIMAZOLE/BETAMETHASONE DIPROPIONATE) (CLOTRIMAZOLE/BETA [Suspect]
     Indication: RASH
     Dosage: 1 DF; BID; TOP
     Route: 061
     Dates: start: 20080331

REACTIONS (1)
  - PHOTOSENSITIVITY REACTION [None]
